FAERS Safety Report 15166988 (Version 1)
Quarter: 2018Q3

REPORT INFORMATION
  Report Type: Spontaneous
  Country: US (occurrence: US)
  Receive Date: 20180621
  Receipt Date: 20180621
  Transmission Date: 20181010
  Serious: Yes (Life-Threatening)
  Sender: FDA-Public Use
  Company Number: None

PATIENT
  Age: 61 Year
  Sex: Male
  Weight: 111.6 kg

DRUGS (12)
  1. ENBREL [Suspect]
     Active Substance: ETANERCEPT
     Indication: SPINAL OSTEOARTHRITIS
     Dosage: ?          QUANTITY:1 INJECTION(S);?
     Route: 030
     Dates: start: 20110805, end: 20160608
  2. TIZANIDINE. [Concomitant]
     Active Substance: TIZANIDINE
  3. CENTRUM SILVER [Concomitant]
     Active Substance: MINERALS\VITAMINS
  4. HUMIRA [Suspect]
     Active Substance: ADALIMUMAB
     Indication: SPINAL OSTEOARTHRITIS
     Dosage: ?          QUANTITY:1 INJECTION(S);?
     Route: 030
     Dates: start: 20081223, end: 20110705
  5. PAROXATINE [Concomitant]
  6. AMLODIPINE [Concomitant]
     Active Substance: AMLODIPINE BESYLATE
  7. LEVOTHYROXIN [Concomitant]
     Active Substance: LEVOTHYROXINE
  8. D2 [Concomitant]
  9. MELATONIN [Concomitant]
     Active Substance: MELATONIN
  10. BUPROPION. [Concomitant]
     Active Substance: BUPROPION
  11. ROSUVASTATIN CALCIUM. [Concomitant]
     Active Substance: ROSUVASTATIN CALCIUM
  12. ZOLTIDEM [Concomitant]

REACTIONS (1)
  - Chronic lymphocytic leukaemia [None]

NARRATIVE: CASE EVENT DATE: 20180516
